FAERS Safety Report 21379640 (Version 1)
Quarter: 2022Q3

REPORT INFORMATION
  Report Type: Spontaneous
  Country: US (occurrence: US)
  Receive Date: 20220927
  Receipt Date: 20220927
  Transmission Date: 20221027
  Serious: Yes (Hospitalization, Other)
  Sender: FDA-Public Use
  Company Number: US-SUN PHARMACEUTICAL INDUSTRIES LTD-2022R1-354611

PATIENT
  Sex: Female

DRUGS (3)
  1. IBUPROFEN [Suspect]
     Active Substance: IBUPROFEN
     Indication: Hydrops foetalis
     Dosage: 800 MILLIGRAM, BID
     Route: 065
  2. INDOMETHACIN [Suspect]
     Active Substance: INDOMETHACIN
     Indication: Hydrops foetalis
     Dosage: 100 MILLIGRAM
     Route: 054
  3. INDOMETHACIN [Suspect]
     Active Substance: INDOMETHACIN
     Dosage: 25 MILLIGRAM, QID
     Route: 048

REACTIONS (3)
  - Premature delivery [Unknown]
  - Amniotic fluid index decreased [Unknown]
  - Exposure during pregnancy [Unknown]
